FAERS Safety Report 7917114-1 (Version None)
Quarter: 2011Q4

REPORT INFORMATION
  Report Type: 
  Country: None (occurrence: None)
  Receive Date: 20111101
  Receipt Date: 20111021
  Transmission Date: 20120403
  Serious: Yes (Other)
  Sender: FDA-Public Use
  Company Number: 2011030132

PATIENT
  Age: 32 Year
  Sex: Female

DRUGS (5)
  1. SANDOGLOBULIN [Suspect]
     Dosage: 35 G QD INTRAVENOUS (NOT OTHERWISE SPECIFIED) ; 35  G QD INTRAVENOUS (NOT OTHERWISE SPECIFIED)
     Route: 042
     Dates: start: 20110722, end: 20110722
  2. SANDOGLOBULIN [Suspect]
     Dosage: 35 G QD INTRAVENOUS (NOT OTHERWISE SPECIFIED) ; 35  G QD INTRAVENOUS (NOT OTHERWISE SPECIFIED)
     Route: 042
     Dates: start: 20110809, end: 20110809
  3. DIPRONA (METAMIZOLE) [Concomitant]
  4. GANCICLOVIR [Concomitant]
  5. PREDNISONE [Concomitant]

REACTIONS (3)
  - CHEST PAIN [None]
  - DYSPNOEA [None]
  - INFUSION RELATED REACTION [None]
